FAERS Safety Report 5011183-7 (Version None)
Quarter: 2006Q2

REPORT INFORMATION
  Report Type: 
  Country: None (occurrence: None)
  Receive Date: 20060523
  Receipt Date: 20060512
  Transmission Date: 20061013
  Serious: Yes (Death, Hospitalization)
  Sender: FDA-Public Use
  Company Number: 200610596BNE

PATIENT
  Age: 66 Year
  Sex: Male

DRUGS (7)
  1. CIPROFLOXACIN [Suspect]
     Indication: NEUTROPENIC SEPSIS
     Dosage: 500 MG, BID, INTRAVENOUS
     Route: 042
     Dates: start: 20060317
  2. CEFTAZIDIME [Suspect]
     Indication: NEUTROPENIC SEPSIS
     Dosage: 1 G, TID, INTRAVENOUS
     Route: 042
     Dates: start: 20060321, end: 20060301
  3. CEFTAZIDIME [Suspect]
     Indication: NEUTROPENIC SEPSIS
     Dosage: 1 G, TID, INTRAVENOUS
     Route: 042
     Dates: start: 20060310, end: 20060317
  4. MEROPENEM [Suspect]
     Indication: NEUTROPENIC SEPSIS
     Dosage: 1 G, TID, INTRAVENOUS
     Route: 042
     Dates: start: 20060305
  5. RITUXIMAB [Suspect]
     Indication: NON-HODGKIN'S LYMPHOMA STAGE IV
     Dates: start: 20060209
  6. YTTRIUM-90 (YTTRIUM 90 Y)) [Suspect]
     Indication: NON-HODGKIN'S LYMPHOMA STAGE IV
     Dosage: INTRAVENOUS
     Route: 042
     Dates: start: 20060209
  7. ZEVALIN [Suspect]
     Indication: NON-HODGKIN'S LYMPHOMA STAGE IV
     Dosage: INTRAVENOUS
     Route: 042
     Dates: start: 20060209

REACTIONS (2)
  - NEUTROPENIC SEPSIS [None]
  - STEVENS-JOHNSON SYNDROME [None]
